FAERS Safety Report 4627190-X (Version None)
Quarter: 2005Q1

REPORT INFORMATION
  Report Type: 
  Country: None (occurrence: None)
  Receive Date: 20050331
  Receipt Date: 20050322
  Transmission Date: 20050727
  Serious: Yes (Other)
  Sender: FDA-Public Use
  Company Number: 2005049318

PATIENT
  Sex: Female
  Weight: 58.9676 kg

DRUGS (5)
  1. LIPITOR [Suspect]
     Indication: ILL-DEFINED DISORDER
     Dosage: 20 MG (20 MG, 1 IN 1 D)
  2. NORVASC [Suspect]
     Indication: CARDIAC DISORDER
     Dosage: 20 MG (10 MG, 2 IN 1 D)
  3. FUROSEMIDE [Suspect]
     Indication: ILL-DEFINED DISORDER
     Dosage: 40 MG (40 MG, 1 IN 1 D)
     Dates: start: 20040901
  4. EZETIMIBE (EZETIMIBE) [Suspect]
     Indication: BLOOD CHOLESTEROL ABNORMAL
     Dosage: 10 MG (10 MG, 1 IN 1 D)
     Dates: start: 20050201
  5. BENGAY (MENTHOL) [Suspect]
     Indication: FIBROMYALGIA
     Dosage: 3 IN 1 D, TOPICAL
     Route: 061

REACTIONS (1)
  - ABASIA [None]
